FAERS Safety Report 18394092 (Version 1)
Quarter: 2020Q4

REPORT INFORMATION
  Report Type: Spontaneous
  Country: US (occurrence: US)
  Receive Date: 20201016
  Receipt Date: 20201016
  Transmission Date: 20210114
  Serious: No
  Sender: FDA-Public Use
  Company Number: US-SHIRE-US202033689

PATIENT
  Age: 47 Year
  Sex: Male
  Weight: 99.77 kg

DRUGS (1)
  1. VYVANSE [Suspect]
     Active Substance: LISDEXAMFETAMINE DIMESYLATE
     Indication: CHANGE IN SUSTAINED ATTENTION
     Dosage: 70 MILLIGRAM
     Route: 065
     Dates: start: 202010

REACTIONS (3)
  - Hyperhidrosis [Not Recovered/Not Resolved]
  - Disturbance in attention [Recovering/Resolving]
  - Unevaluable event [Recovering/Resolving]

NARRATIVE: CASE EVENT DATE: 20201009
